FAERS Safety Report 15643465 (Version 2)
Quarter: 2018Q4

REPORT INFORMATION
  Report Type: Spontaneous
  Country: BR (occurrence: BR)
  Receive Date: 20181121
  Receipt Date: 20181121
  Transmission Date: 20190205
  Serious: Yes (Hospitalization, Other)
  Sender: FDA-Public Use
  Company Number: PHHY2018BR159438

PATIENT
  Age: 27 Year
  Sex: Male

DRUGS (3)
  1. ESTRADIOL. [Suspect]
     Active Substance: ESTRADIOL
     Indication: FEMINISATION ACQUIRED
     Dosage: 7.1 MG, UNK(EVERY 15 DAYS)
     Route: 065
  2. ALGESTONE ACETOPHENIDE [Suspect]
     Active Substance: ALGESTONE ACETOPHENIDE
     Indication: FEMINISATION ACQUIRED
     Dosage: 115.9 MG, UNK(EVERY 15 DAYS)
     Route: 065
  3. MEDROXYPROGESTERONE [Suspect]
     Active Substance: MEDROXYPROGESTERONE
     Indication: FEMINISATION ACQUIRED
     Dosage: 50 MG, QD
     Route: 065

REACTIONS (6)
  - Product use in unapproved indication [Unknown]
  - Lupus nephritis [Recovered/Resolved]
  - Oedema peripheral [Recovered/Resolved]
  - Photosensitivity reaction [Recovered/Resolved]
  - Systemic lupus erythematosus [Recovered/Resolved]
  - Butterfly rash [Recovered/Resolved]
